FAERS Safety Report 10043841 (Version 1)
Quarter: 2014Q1

REPORT INFORMATION
  Report Type: Spontaneous
  Country: US (occurrence: None)
  Receive Date: 20140327
  Receipt Date: 20140327
  Transmission Date: 20141002
  Serious: Yes (Life-Threatening)
  Sender: FDA-Public Use
  Company Number: None

PATIENT
  Age: 28 Year
  Sex: Male
  Weight: 59.9 kg

DRUGS (1)
  1. HALOPERIDOL [Suspect]
     Route: 030
     Dates: start: 20140121, end: 20140121

REACTIONS (8)
  - Musculoskeletal stiffness [None]
  - Joint stiffness [None]
  - Musculoskeletal stiffness [None]
  - Swollen tongue [None]
  - Dyspnoea [None]
  - Hyperventilation [None]
  - Speech disorder [None]
  - Muscle disorder [None]
